FAERS Safety Report 9889440 (Version 1)
Quarter: 2014Q1

REPORT INFORMATION
  Report Type: Report from Study
  Country: GB (occurrence: GB)
  Receive Date: 20140211
  Receipt Date: 20140211
  Transmission Date: 20141002
  Serious: Yes (Hospitalization)
  Sender: FDA-Public Use
  Company Number: GB-ASTRAZENECA-2014SE08782

PATIENT
  Age: 17544 Day
  Sex: Female
  Weight: 82.5 kg

DRUGS (7)
  1. CEDIRANIB CODE NOT BROKEN [Suspect]
     Indication: CERVIX CARCINOMA
     Dosage: DAILY
     Route: 048
     Dates: start: 20120405
  2. CARBOPLATIN [Suspect]
     Indication: CERVIX CARCINOMA
     Dosage: 445 MG, 3/52
     Route: 042
     Dates: start: 20120405
  3. PACLITAXEL [Suspect]
     Indication: CERVIX CARCINOMA
     Dosage: 332 MG, 3/52
     Route: 042
     Dates: start: 20120405
  4. AMLODIPINE [Suspect]
     Indication: HYPERTENSION
     Route: 048
     Dates: start: 20120625
  5. AMLODIPINE [Suspect]
     Indication: HYPERTENSION
     Route: 048
     Dates: start: 20120709
  6. FLUOXETINE [Concomitant]
     Indication: ANXIETY
     Route: 048
  7. FERROUS SULPHATE [Concomitant]
     Indication: ANAEMIA
     Route: 048
     Dates: start: 20120525

REACTIONS (2)
  - Anaemia [Recovered/Resolved with Sequelae]
  - Hypertension [Recovered/Resolved with Sequelae]
